FAERS Safety Report 12961368 (Version 1)
Quarter: 2016Q4

REPORT INFORMATION
  Report Type: Spontaneous
  Country: MX (occurrence: MX)
  Receive Date: 20161121
  Receipt Date: 20161121
  Transmission Date: 20170207
  Serious: Yes (Other)
  Sender: FDA-Public Use
  Company Number: MX-PFIZER INC-2016537707

PATIENT
  Sex: Female

DRUGS (2)
  1. CELEBREX [Suspect]
     Active Substance: CELECOXIB
     Dosage: UNK
  2. GALVUS [Concomitant]
     Active Substance: VILDAGLIPTIN
     Dosage: UNK

REACTIONS (1)
  - Blindness [Not Recovered/Not Resolved]
